FAERS Safety Report 20602128 (Version 2)
Quarter: 2022Q1

REPORT INFORMATION
  Report Type: Spontaneous
  Country: US (occurrence: US)
  Receive Date: 20220316
  Receipt Date: 20220316
  Transmission Date: 20220423
  Serious: Yes (Hospitalization)
  Sender: FDA-Public Use
  Company Number: US-GILEAD-2022-0573763

PATIENT
  Age: 2 Year
  Sex: Female

DRUGS (2)
  1. AMBRISENTAN [Suspect]
     Active Substance: AMBRISENTAN
     Indication: Accidental exposure to product by child
     Dosage: UNK
     Route: 065
  2. UPTRAVI [Suspect]
     Active Substance: SELEXIPAG
     Indication: Accidental exposure to product by child
     Dosage: 1600 UG
     Route: 048
     Dates: start: 20220203

REACTIONS (3)
  - Blood pressure decreased [Recovered/Resolved with Sequelae]
  - Vomiting [Recovered/Resolved with Sequelae]
  - Accidental exposure to product by child [Unknown]

NARRATIVE: CASE EVENT DATE: 20220203
